FAERS Safety Report 25930816 (Version 1)
Quarter: 2025Q4

REPORT INFORMATION
  Report Type: Spontaneous
  Country: US (occurrence: US)
  Receive Date: 20251016
  Receipt Date: 20251016
  Transmission Date: 20260117
  Serious: Yes (Hospitalization)
  Sender: MERCK SHARP & DOHME LLC
  Company Number: US-009507513-2338165

PATIENT
  Age: 67 Year
  Sex: Male

DRUGS (2)
  1. PEMBROLIZUMAB [Suspect]
     Active Substance: PEMBROLIZUMAB
     Indication: Bladder transitional cell carcinoma
  2. Efortumab vedotin [Concomitant]
     Indication: Bladder transitional cell carcinoma

REACTIONS (1)
  - Immune-mediated enterocolitis [Recovered/Resolved with Sequelae]
